FAERS Safety Report 4355776-9 (Version None)
Quarter: 2004Q2

REPORT INFORMATION
  Report Type: 
  Country: None (occurrence: None)
  Receive Date: 20040505
  Receipt Date: 20040428
  Transmission Date: 20050107
  Serious: Yes (Other)
  Sender: FDA-Public Use
  Company Number: 2004207109US

PATIENT
  Age: 80 Year
  Sex: Female
  Weight: 55.2 kg

DRUGS (8)
  1. BEXTRA [Suspect]
     Indication: ARTHRITIS
     Dosage: 10 MG, 2 DOSES
  2. PREMARIN [Concomitant]
  3. CLARITIN [Concomitant]
  4. BECOANSE (CECLOMETASONE DIPROPIONATE) [Concomitant]
  5. ASPIRIN [Concomitant]
  6. GLUCOSAMINE CHONDROITIN [Concomitant]
  7. ALTACE [Concomitant]
  8. VERAPAMIL [Concomitant]

REACTIONS (3)
  - DRUG HYPERSENSITIVITY [None]
  - RASH ERYTHEMATOUS [None]
  - URTICARIA [None]
